FAERS Safety Report 19367213 (Version 1)
Quarter: 2021Q2

REPORT INFORMATION
  Report Type: Report from Study
  Country: US (occurrence: US)
  Receive Date: 20210602
  Receipt Date: 20210602
  Transmission Date: 20210717
  Serious: Yes (Other)
  Sender: FDA-Public Use
  Company Number: US-BAUSCH-BL-2021-018645

PATIENT
  Age: 57 Year
  Sex: Female

DRUGS (3)
  1. RELISTOR [Suspect]
     Active Substance: METHYLNALTREXONE BROMIDE
     Indication: CONSTIPATION
     Dosage: STARTED APPROXIMATELY ONE YEAR AGO, AS NEEDED
     Route: 048
     Dates: end: 202105
  2. RELISTOR [Suspect]
     Active Substance: METHYLNALTREXONE BROMIDE
     Indication: CONSTIPATION
     Dosage: APPROXIMATELY THREE TO FOUR YEARS AGO AND STOPPED APPROXIMATELY ONE YEAR AGO
     Route: 058
  3. RELISTOR [Suspect]
     Active Substance: METHYLNALTREXONE BROMIDE
     Dosage: USED TWO SAMPLES THAT WERE EXPIRED
     Route: 048
     Dates: start: 202105, end: 20210508

REACTIONS (4)
  - Ileostomy [Unknown]
  - Shoulder operation [Unknown]
  - Therapy interrupted [Unknown]
  - Expired product administered [Unknown]

NARRATIVE: CASE EVENT DATE: 202105
